FAERS Safety Report 22093262 (Version 3)
Quarter: 2023Q2

REPORT INFORMATION
  Report Type: Report from Study
  Country: US (occurrence: US)
  Receive Date: 20230314
  Receipt Date: 20230425
  Transmission Date: 20230722
  Serious: Yes (Hospitalization, Other)
  Sender: FDA-Public Use
  Company Number: US-ABBVIE-4338252

PATIENT
  Age: 48 Year
  Sex: Male
  Weight: 113 kg

DRUGS (2)
  1. RINVOQ [Suspect]
     Active Substance: UPADACITINIB
     Indication: Dermatitis atopic
     Dosage: DISCONTINUED IN FEB OR MAR 2023, FORM STRENGTH 15 MILLIGRAM
     Route: 048
  2. RINVOQ [Suspect]
     Active Substance: UPADACITINIB
     Indication: Dermatitis atopic
     Dosage: 15 MILLIGRAM?FIRST ADMIN DATE: 14 FEB 2023?LAST ADMIN DATE: 28 FEB 2023?FREQUENCY TEXT: QD
     Route: 048

REACTIONS (3)
  - Nail injury [Recovered/Resolved]
  - Cellulitis [Recovered/Resolved]
  - Diabetic gangrene [Recovered/Resolved]

NARRATIVE: CASE EVENT DATE: 20230124
